FAERS Safety Report 10792381 (Version 1)
Quarter: 2015Q1

REPORT INFORMATION
  Report Type: Spontaneous
  Country: IN (occurrence: None)
  Receive Date: 20150211
  Receipt Date: 20150211
  Transmission Date: 20150721
  Serious: Yes (Death, Hospitalization)
  Sender: FDA-Public Use
  Company Number: COR_00245_2015

PATIENT
  Age: 29 Year
  Sex: Female

DRUGS (3)
  1. CARBOPLATIN. [Suspect]
     Active Substance: CARBOPLATIN
     Indication: ANAPLASTIC LARGE-CELL LYMPHOMA
     Dosage: 450 MG, ON 1ST DAY OF THE FIRST CYCLE
  2. ETOPOSIDE (ETOPOSIDE) [Suspect]
     Active Substance: ETOPOSIDE
     Indication: ANAPLASTIC LARGE-CELL LYMPHOMA
     Dosage: 600 MG, DIVIDED OVER 3 DAYS?
  3. IFOSFAMIDE (IFOSFAMIDE) [Suspect]
     Active Substance: IFOSFAMIDE
     Indication: ANAPLASTIC LARGE-CELL LYMPHOMA
     Dosage: 9 G, DIVIDED OVER 3 DAYS?

REACTIONS (3)
  - Vision blurred [None]
  - Posterior reversible encephalopathy syndrome [None]
  - Disease recurrence [None]
